FAERS Safety Report 13469493 (Version 1)
Quarter: 2017Q2

REPORT INFORMATION
  Report Type: Spontaneous
  Country: US (occurrence: US)
  Receive Date: 20170421
  Receipt Date: 20170421
  Transmission Date: 20170830
  Serious: Yes (Other)
  Sender: FDA-Public Use
  Company Number: US-AMGEN-USASP2017058662

PATIENT
  Age: 41 Year
  Sex: Female

DRUGS (1)
  1. ENBREL [Suspect]
     Active Substance: ETANERCEPT
     Indication: ANKYLOSING SPONDYLITIS
     Dosage: UNK
     Route: 065

REACTIONS (6)
  - Malaise [Unknown]
  - Adverse event [Unknown]
  - Immunodeficiency [Unknown]
  - Pharyngitis streptococcal [Unknown]
  - Drug effect incomplete [Unknown]
  - Sinusitis [Unknown]
